FAERS Safety Report 4350296-X (Version None)
Quarter: 2004Q2

REPORT INFORMATION
  Report Type: 
  Country: None (occurrence: None)
  Receive Date: 20040429
  Receipt Date: 20040304
  Transmission Date: 20050107
  Serious: Yes (Hospitalization)
  Sender: FDA-Public Use
  Company Number: JP-MERCK-0403USA00764

PATIENT
  Age: 57 Year
  Sex: Female
  Weight: 62 kg

DRUGS (5)
  1. TRUSOPT [Suspect]
     Indication: OCULAR HYPERTENSION
     Route: 047
     Dates: start: 20001114, end: 20001219
  2. FLUOROMETHOLONE [Suspect]
     Indication: UVEITIS
     Route: 047
     Dates: start: 19950424, end: 20001219
  3. FLUOROMETHOLONE [Suspect]
     Route: 047
     Dates: start: 20001223
  4. TIMOPTIC [Suspect]
     Indication: OCULAR HYPERTENSION
     Route: 047
     Dates: start: 19881024, end: 20001219
  5. TIMOPTIC [Suspect]
     Route: 047
     Dates: start: 20001223

REACTIONS (10)
  - CILIARY HYPERAEMIA [None]
  - CONJUNCTIVITIS [None]
  - CORNEAL ULCER [None]
  - EYE INFECTION BACTERIAL [None]
  - HYPOPYON [None]
  - IRITIS [None]
  - PANCYTOPENIA [None]
  - PUNCTATE KERATITIS [None]
  - RETINAL HAEMORRHAGE [None]
  - SHIFT TO THE LEFT [None]
